FAERS Safety Report 18173618 (Version 1)
Quarter: 2020Q3

REPORT INFORMATION
  Report Type: Spontaneous
  Country: DE (occurrence: DE)
  Receive Date: 20200820
  Receipt Date: 20200820
  Transmission Date: 20201103
  Serious: Yes (Life-Threatening, Hospitalization)
  Sender: FDA-Public Use
  Company Number: DE-TEVA-2020-DE-1815628

PATIENT
  Age: 86 Year
  Sex: Female

DRUGS (7)
  1. PANTOPRAZOL [Concomitant]
     Active Substance: PANTOPRAZOLE SODIUM
     Dosage: 40 MILLIGRAM DAILY; 0?0?1?0
     Route: 048
  2. FOLSAURE [Concomitant]
     Active Substance: FOLIC ACID
     Dosage: 5 MILLIGRAM DAILY; 1?0?0?0
     Route: 048
  3. NALOXON/TILIDIN [Concomitant]
     Dosage: 2 DOSAGE FORMS DAILY; 4|50 MG, 1?0?1?0
     Route: 048
  4. TORASEMID [Suspect]
     Active Substance: TORSEMIDE
     Dosage: 20 MILLIGRAM DAILY; 1?0?0?0
     Route: 048
  5. CYANOCOBALAMIN (VITAMIN B12) [Concomitant]
     Dosage: 1 MG / WEEK, 1X, AMPOULES
     Route: 058
  6. COLECALCIFEROL (VITAMIN D) [Concomitant]
     Dosage: 20000 IU / WEEKS, 4X
     Route: 048
  7. FONDAPARINUX [Concomitant]
     Active Substance: FONDAPARINUX
     Dosage: 2.5 MILLIGRAM DAILY; 0?0?1?0
     Route: 058

REACTIONS (5)
  - Dehydration [Unknown]
  - Condition aggravated [Unknown]
  - Product prescribing error [Unknown]
  - Depressed level of consciousness [Unknown]
  - Thirst [Unknown]
